FAERS Safety Report 18448193 (Version 2)
Quarter: 2020Q4

REPORT INFORMATION
  Report Type: Spontaneous
  Country: SE (occurrence: SE)
  Receive Date: 20201031
  Receipt Date: 20201107
  Transmission Date: 20210114
  Serious: Yes (Life-Threatening, Hospitalization, Disabling, Other)
  Sender: FDA-Public Use
  Company Number: SE-AUROBINDO-AUR-APL-2020-054937

PATIENT
  Age: 53 Year
  Sex: Male

DRUGS (16)
  1. PROPAVAN 25 MG TABLETT [Concomitant]
     Active Substance: PROPIOMAZINE
     Indication: PRODUCT USE IN UNAPPROVED INDICATION
     Dosage: 2 TN
     Route: 065
     Dates: start: 2017, end: 20200926
  2. BUSPIRONE [Suspect]
     Active Substance: BUSPIRONE HYDROCHLORIDE
     Indication: POST-TRAUMATIC STRESS DISORDER
     Dosage: UNK
     Route: 065
  3. MELATONIN [Concomitant]
     Active Substance: MELATONIN
     Indication: PRODUCT USE IN UNAPPROVED INDICATION
     Dosage: 5 TN
     Route: 065
     Dates: start: 2019, end: 20200926
  4. OLANZAPINE. [Suspect]
     Active Substance: OLANZAPINE
     Indication: POST-TRAUMATIC STRESS DISORDER
     Dosage: UNK
     Route: 065
  5. NOZINAN 25 MG TABLETT (LEVOMEPROMAZINE MALEATE) [Suspect]
     Active Substance: LEVOMEPROMAZINE MALEATE
     Indication: SCHIZOAFFECTIVE DISORDER
     Dosage: 25 MG 3 TN
     Route: 048
     Dates: start: 2018, end: 20200926
  6. BUSPIRONE [Suspect]
     Active Substance: BUSPIRONE HYDROCHLORIDE
     Indication: SCHIZOAFFECTIVE DISORDER
     Dosage: 10 MG 3X2
     Route: 048
     Dates: start: 2017, end: 20200926
  7. ZOPICLONE [Concomitant]
     Active Substance: ZOPICLONE
     Indication: PRODUCT USE IN UNAPPROVED INDICATION
     Dosage: 1 TN
     Route: 065
     Dates: start: 2013, end: 20200926
  8. OLANZAPINE. [Suspect]
     Active Substance: OLANZAPINE
     Indication: SCHIZOAFFECTIVE DISORDER
     Dosage: 10 MG 3 TN
     Route: 048
     Dates: start: 2013, end: 20200926
  9. ATORVASTATIN [Concomitant]
     Active Substance: ATORVASTATIN
     Indication: PRODUCT USE IN UNAPPROVED INDICATION
     Route: 065
     Dates: start: 2017, end: 20201002
  10. STESOLID 5 MG TABLETT [Concomitant]
     Active Substance: DIAZEPAM
     Indication: PRODUCT USE IN UNAPPROVED INDICATION
     Dosage: TAGIT UPP TILL 6 ST /DYGN
     Route: 065
     Dates: start: 2014, end: 20200926
  11. TROMBYL 75 MG TABLETT [Concomitant]
     Active Substance: ASPIRIN
     Indication: PRODUCT USE IN UNAPPROVED INDICATION
     Route: 065
     Dates: start: 2015, end: 20201002
  12. MIRTAZAPINE. [Suspect]
     Active Substance: MIRTAZAPINE
     Indication: SCHIZOAFFECTIVE DISORDER
     Dosage: 30 MG 1,5 TN
     Route: 048
     Dates: start: 2013, end: 20200926
  13. QUETIAPINE. [Suspect]
     Active Substance: QUETIAPINE
     Indication: SCHIZOAFFECTIVE DISORDER
     Dosage: 25 MG 2-4 TN
     Route: 048
     Dates: start: 2019, end: 20200926
  14. MIRTAZAPINE. [Suspect]
     Active Substance: MIRTAZAPINE
     Indication: POST-TRAUMATIC STRESS DISORDER
  15. NOZINAN 25 MG TABLETT (LEVOMEPROMAZINE MALEATE) [Suspect]
     Active Substance: LEVOMEPROMAZINE MALEATE
     Indication: POST-TRAUMATIC STRESS DISORDER
     Dosage: UNK
     Route: 065
  16. QUETIAPINE. [Suspect]
     Active Substance: QUETIAPINE
     Indication: POST-TRAUMATIC STRESS DISORDER
     Dosage: UNK
     Route: 065

REACTIONS (3)
  - Accidental overdose [Not Recovered/Not Resolved]
  - Cerebrovascular accident [Not Recovered/Not Resolved]
  - Electrocardiogram QT prolonged [Not Recovered/Not Resolved]

NARRATIVE: CASE EVENT DATE: 20200926
